FAERS Safety Report 6671484-3 (Version None)
Quarter: 2010Q2

REPORT INFORMATION
  Report Type: 
  Country: None (occurrence: None)
  Receive Date: 20100407
  Receipt Date: 20100401
  Transmission Date: 20101027
  Serious: Yes (Hospitalization)
  Sender: FDA-Public Use
  Company Number: US-MERCK-1004USA00133

PATIENT
  Age: 72 Year
  Sex: Female

DRUGS (8)
  1. COZAAR [Suspect]
     Indication: HYPERTENSION
     Route: 048
     Dates: start: 20090101, end: 20100303
  2. COZAAR [Suspect]
     Route: 048
     Dates: start: 20100303, end: 20100318
  3. COZAAR [Suspect]
     Route: 048
     Dates: start: 20100318
  4. COUMADIN [Concomitant]
     Route: 065
  5. GABAPENTIN [Concomitant]
     Route: 065
  6. GLIPIZIDE [Concomitant]
     Route: 065
  7. PREVACID [Concomitant]
     Route: 065
  8. HYDROXYZINE [Suspect]
     Route: 048

REACTIONS (4)
  - BACK PAIN [None]
  - BLOOD PRESSURE ABNORMAL [None]
  - LOSS OF CONSCIOUSNESS [None]
  - OVERDOSE [None]
